FAERS Safety Report 22611669 (Version 1)
Quarter: 2023Q2

REPORT INFORMATION
  Report Type: Spontaneous
  Country: JP (occurrence: JP)
  Receive Date: 20230616
  Receipt Date: 20230616
  Transmission Date: 20230722
  Serious: Yes (Death, Life-Threatening)
  Sender: FDA-Public Use
  Company Number: JP-MLMSERVICE-20230601-4317542-1

PATIENT
  Age: 64 Year
  Sex: Male
  Weight: 73 kg

DRUGS (6)
  1. DEXAMETHASONE [Suspect]
     Active Substance: DEXAMETHASONE
     Indication: COVID-19 pneumonia
     Route: 065
     Dates: start: 2021, end: 2021
  2. REMDESIVIR [Suspect]
     Active Substance: REMDESIVIR
     Indication: COVID-19 pneumonia
     Dosage: DAY 1
     Route: 065
     Dates: start: 2021, end: 2021
  3. REMDESIVIR [Suspect]
     Active Substance: REMDESIVIR
     Route: 065
     Dates: start: 2021
  4. BARICITINIB [Suspect]
     Active Substance: BARICITINIB
     Indication: COVID-19 pneumonia
     Route: 065
     Dates: start: 2021
  5. EDOXABAN [Suspect]
     Active Substance: EDOXABAN
     Indication: COVID-19 pneumonia
     Route: 065
     Dates: start: 2021
  6. OXYGEN [Suspect]
     Active Substance: OXYGEN
     Indication: COVID-19 pneumonia
     Route: 065

REACTIONS (4)
  - Respiratory failure [Fatal]
  - Pneumothorax [Not Recovered/Not Resolved]
  - Bronchopulmonary aspergillosis [Not Recovered/Not Resolved]
  - Therapy non-responder [Unknown]

NARRATIVE: CASE EVENT DATE: 20210101
